FAERS Safety Report 9412603 (Version 1)
Quarter: 2013Q3

REPORT INFORMATION
  Report Type: Spontaneous
  Country: US (occurrence: US)
  Receive Date: 20130722
  Receipt Date: 20130722
  Transmission Date: 20140515
  Serious: Yes (Hospitalization)
  Sender: FDA-Public Use
  Company Number: US-BAYER-2013-088006

PATIENT
  Age: 26 Year
  Sex: Female

DRUGS (6)
  1. YAZ [Suspect]
  2. KEFLEX [Concomitant]
     Indication: ACNE
  3. NASONEX [Concomitant]
  4. PULMOCORTISON INY [Concomitant]
  5. ALBUTEROL INHALER [Concomitant]
  6. NAPROSYN [Concomitant]

REACTIONS (1)
  - Pulmonary embolism [Recovered/Resolved]
